FAERS Safety Report 8811211 (Version 1)
Quarter: 2012Q4

REPORT INFORMATION
  Report Type: 
  Country: US (occurrence: US)
  Receive Date: 20120927
  Receipt Date: 20120927
  Transmission Date: 20130627
  Serious: Yes (Disabling, Other)
  Sender: FDA-Public Use
  Company Number: PHEH2012US018653

PATIENT
  Sex: Male

DRUGS (1)
  1. AFINITOR [Suspect]
     Dosage: 10 mg, daily

REACTIONS (3)
  - Scrotal swelling [Unknown]
  - Penile oedema [Unknown]
  - Oedema peripheral [Unknown]
